FAERS Safety Report 13767797 (Version 5)
Quarter: 2023Q1

REPORT INFORMATION
  Report Type: Spontaneous
  Country: CA (occurrence: CA)
  Receive Date: 20170719
  Receipt Date: 20230301
  Transmission Date: 20230418
  Serious: Yes (Other)
  Sender: FDA-Public Use
  Company Number: CA-PFIZER INC-2017309213

PATIENT
  Age: 7 Year
  Sex: Female

DRUGS (7)
  1. GENOTROPIN [Suspect]
     Active Substance: SOMATROPIN
     Indication: Growth hormone deficiency
     Dosage: 0.6 MG, SIX TIMES PER WEEK
     Route: 058
     Dates: start: 20160418, end: 201707
  2. GENOTROPIN [Suspect]
     Active Substance: SOMATROPIN
     Dosage: 0.6 MG ,SIX TIMES PER WEEK
     Route: 058
     Dates: start: 2016, end: 2019
  3. GENOTROPIN [Suspect]
     Active Substance: SOMATROPIN
     Dosage: 0.8 MG, SIX TIMES PER WEEK
     Route: 058
     Dates: start: 201707
  4. GENOTROPIN [Suspect]
     Active Substance: SOMATROPIN
     Dosage: 1 MG, SIX TIMES PER WEEK
     Route: 058
  5. GENOTROPIN [Suspect]
     Active Substance: SOMATROPIN
     Dosage: 1.35 MG, Q 6 DAYS A WEEK
     Route: 058
  6. GENOTROPIN [Suspect]
     Active Substance: SOMATROPIN
     Dosage: 1.2 MG ,Q 6 DAYS A WEEK
     Route: 058
     Dates: start: 2019, end: 2021
  7. GENOTROPIN [Suspect]
     Active Substance: SOMATROPIN
     Dosage: 1.35 MG ,Q 6 DAYS A WEEK, DISCONTINUE
     Route: 058
     Dates: start: 2021, end: 202210

REACTIONS (2)
  - Thrombosis [Recovered/Resolved]
  - Wrong schedule [Unknown]

NARRATIVE: CASE EVENT DATE: 20160101
